FAERS Safety Report 9484215 (Version 1)
Quarter: 2013Q3

REPORT INFORMATION
  Report Type: Spontaneous
  Country: CA (occurrence: CA)
  Receive Date: 20130828
  Receipt Date: 20130828
  Transmission Date: 20140515
  Serious: Yes (Other)
  Sender: FDA-Public Use
  Company Number: CA-AMGEN-KDL390108

PATIENT
  Age: 47 Year
  Sex: Female
  Weight: 63.6 kg

DRUGS (1)
  1. ENBREL [Suspect]
     Indication: RHEUMATOID ARTHRITIS
     Dosage: UNK UNK, QWK
     Route: 065
     Dates: start: 20090803

REACTIONS (4)
  - Swollen tongue [Unknown]
  - Eye swelling [Unknown]
  - Swelling face [Unknown]
  - Hypersensitivity [Unknown]
